FAERS Safety Report 4679992-1 (Version None)
Quarter: 2005Q2

REPORT INFORMATION
  Report Type: 
  Country: None (occurrence: None)
  Receive Date: 20050531
  Receipt Date: 20050519
  Transmission Date: 20051028
  Serious: Yes (Other)
  Sender: FDA-Public Use
  Company Number: 2005078159

PATIENT
  Age: 78 Year
  Sex: Male

DRUGS (5)
  1. CABERGOLINE [Suspect]
     Indication: PARKINSON'S DISEASE
     Dosage: SEE IMAGE
     Route: 048
     Dates: end: 20050518
  2. CABERGOLINE [Suspect]
     Indication: PARKINSON'S DISEASE
     Dosage: SEE IMAGE
     Route: 048
     Dates: start: 20040201
  3. DIOVAN ^CIBA-GEIGY^ (VALSARTAN) [Concomitant]
  4. MENESIT (CARBIDOPA, LEVODOPA) [Concomitant]
  5. TOCOPHEROL (TOCOPHEROL) [Concomitant]

REACTIONS (3)
  - COUGH [None]
  - PLEURAL EFFUSION [None]
  - PLEURISY [None]
